FAERS Safety Report 11842670 (Version 31)
Quarter: 2023Q2

REPORT INFORMATION
  Report Type: Spontaneous
  Country: ES (occurrence: ES)
  Receive Date: 20151216
  Receipt Date: 20230413
  Transmission Date: 20230722
  Serious: Yes (Hospitalization, Other)
  Sender: FDA-Public Use
  Company Number: ES-MLMSERVICE-20151209-0103683-1

PATIENT
  Age: 74 Year
  Sex: Female

DRUGS (20)
  1. DILTIAZEM HYDROCHLORIDE [Interacting]
     Active Substance: DILTIAZEM HYDROCHLORIDE
     Dosage: 120 MG,QD
  2. METHOTREXATE SODIUM [Interacting]
     Active Substance: METHOTREXATE SODIUM
     Dosage: 2.5 MG,QW
  3. BISOPROLOL FUMARATE [Interacting]
     Active Substance: BISOPROLOL FUMARATE
     Dosage: 5 MG,QD
  4. OMEPRAZOLE [Interacting]
     Active Substance: OMEPRAZOLE
     Dosage: 20 MG,QD
  5. RAMIPRIL [Interacting]
     Active Substance: RAMIPRIL
     Dosage: 5 MG,QD
  6. ALPRAZOLAM [Interacting]
     Active Substance: ALPRAZOLAM
     Indication: Euphoric mood
     Dosage: UNK
  7. ALPRAZOLAM [Interacting]
     Active Substance: ALPRAZOLAM
     Indication: Disorientation
  8. METHYLPREDNISOLONE ACEPONATE [Interacting]
     Active Substance: METHYLPREDNISOLONE ACEPONATE
     Indication: Erythema
     Dosage: UNK
     Route: 061
  9. HYDROCHLOROTHIAZIDE [Interacting]
     Active Substance: HYDROCHLOROTHIAZIDE
     Indication: Chronic kidney disease
     Dosage: 25 MG,QD
  10. HYDROCORTISONE [Interacting]
     Active Substance: HYDROCORTISONE
     Indication: Erythrodermic psoriasis
     Dosage: UNK
     Route: 061
  11. CLOBETASOL [Interacting]
     Active Substance: CLOBETASOL
     Dosage: UNK
     Route: 061
  12. ACENOCOUMAROL [Interacting]
     Active Substance: ACENOCOUMAROL
     Dosage: 1 MG, DAILY
  13. CLORAZEPATE DIPOTASSIUM [Interacting]
     Active Substance: CLORAZEPATE DIPOTASSIUM
     Dosage: 5 MG,QD
  14. DIGOXIN [Interacting]
     Active Substance: DIGOXIN
     Indication: Cardiac failure congestive
     Dosage: 0.125 MG, DAILY
  15. DIGOXIN [Interacting]
     Active Substance: DIGOXIN
     Indication: Atrial fibrillation
  16. ENOXAPARIN [Interacting]
     Active Substance: ENOXAPARIN
     Dosage: 40 MG,QD
  17. FUROSEMIDE [Interacting]
     Active Substance: FUROSEMIDE
     Indication: Chronic kidney disease
     Dosage: 60 MG,QD
  18. PREDNISONE [Interacting]
     Active Substance: PREDNISONE
     Indication: Erythrodermic psoriasis
     Dosage: 0.5 MG/KG, QD
     Route: 048
  19. FOLIC ACID [Interacting]
     Active Substance: FOLIC ACID
     Dosage: 5 MG, WEEKLY
  20. INSULIN NOS [Interacting]
     Active Substance: INSULIN NOS
     Dosage: 100 IU, DAILY

REACTIONS (9)
  - Drug interaction [Recovered/Resolved]
  - Erythrodermic psoriasis [Recovered/Resolved]
  - Disorientation [Unknown]
  - Euphoric mood [Unknown]
  - Erythema [Recovered/Resolved]
  - Condition aggravated [Recovered/Resolved]
  - Toxicity to various agents [Recovering/Resolving]
  - Transaminases increased [Recovering/Resolving]
  - Somnolence [Unknown]
